FAERS Safety Report 8646548 (Version 2)
Quarter: 2012Q4

REPORT INFORMATION
  Report Type: 
  Country: DE (occurrence: FR)
  Receive Date: 20120702
  Receipt Date: 20121029
  Transmission Date: 20130627
  Serious: Yes (Other)
  Sender: FDA-Public Use
  Company Number: FR-FRI-1000036762

PATIENT
  Age: 82 Year
  Sex: Female

DRUGS (5)
  1. MEMANTINE [Suspect]
     Indication: DEMENTIA ALZHEIMER^S TYPE
     Dosage: 5 mg
     Route: 048
     Dates: start: 20120211, end: 20120217
  2. MEMANTINE [Suspect]
     Indication: DEMENTIA ALZHEIMER^S TYPE
     Route: 048
  3. PLAVIX [Concomitant]
     Dosage: 1 DF
     Route: 048
  4. ARICEPT [Concomitant]
  5. DIAMOX [Concomitant]

REACTIONS (2)
  - Hypertensive crisis [Recovered/Resolved]
  - Headache [Recovered/Resolved]
